FAERS Safety Report 5513022-4 (Version None)
Quarter: 2007Q4

REPORT INFORMATION
  Report Type: 
  Country: None (occurrence: None)
  Receive Date: 20071112
  Receipt Date: 20071107
  Transmission Date: 20080405
  Serious: Yes (Life-Threatening, Hospitalization)
  Sender: FDA-Public Use
  Company Number: FR-WYE-G00530307

PATIENT
  Sex: Female
  Weight: 83 kg

DRUGS (10)
  1. EFFEXOR [Suspect]
     Route: 048
  2. CAMPTOSAR [Suspect]
     Indication: COLON CANCER METASTATIC
     Dosage: 255 MG (127 MG/M2) EVERY 2 WEEKS
     Route: 042
     Dates: start: 20070726, end: 20070813
  3. CAMPTOSAR [Suspect]
     Dosage: 350 MG (175 MG/M2) EVERY 2 WEEKS
     Route: 042
     Dates: start: 20070830, end: 20070914
  4. CALCIDOSE [Suspect]
     Route: 048
  5. CORTANCYL [Suspect]
     Route: 048
  6. PANTOPRAZOLE SODIUM [Suspect]
     Route: 048
  7. ALPRAZOLAM [Suspect]
     Route: 048
  8. AVASTIN [Suspect]
     Indication: COLON CANCER METASTATIC
     Dosage: 400 MG (4.82 MG/KG) EVERY 2 WEEKS
     Route: 042
     Dates: start: 20070726, end: 20070914
  9. FLUOROURACIL [Suspect]
     Indication: COLON CANCER METASTATIC
     Dosage: UNKNOWN DOSE EVERY 2 WEEKS
     Route: 042
     Dates: start: 20070607, end: 20070705
  10. FLUOROURACIL [Suspect]
     Dosage: 3.4 G EVERY 2 WEEKS
     Route: 042
     Dates: start: 20070726, end: 20070914

REACTIONS (2)
  - LARGE INTESTINE PERFORATION [None]
  - PERITONITIS [None]
